FAERS Safety Report 18268466 (Version 1)
Quarter: 2020Q3

REPORT INFORMATION
  Report Type: Spontaneous
  Country: US (occurrence: US)
  Receive Date: 20200915
  Receipt Date: 20200915
  Transmission Date: 20201103
  Serious: No
  Sender: FDA-Public Use
  Company Number: US-PFIZER INC-2020355742

PATIENT
  Age: 90 Year
  Sex: Female

DRUGS (1)
  1. IBRANCE [Suspect]
     Active Substance: PALBOCICLIB
     Indication: BREAST NEOPLASM
     Dosage: 75 MG, CYCLIC(75MG Q (EVERY) D (DAY) X 21 DAYS Q (EVERY) 28 DAYS)
     Dates: start: 20180301

REACTIONS (2)
  - Thermal burn [Unknown]
  - Nerve injury [Unknown]
